FAERS Safety Report 7169793-7 (Version None)
Quarter: 2010Q4

REPORT INFORMATION
  Report Type: 
  Country: None (occurrence: None)
  Receive Date: 20101217
  Receipt Date: 20101013
  Transmission Date: 20110411
  Serious: No
  Sender: FDA-Public Use
  Company Number: A0884606A

PATIENT
  Age: 81 Year
  Sex: Male
  Weight: 53.6 kg

DRUGS (1)
  1. SORIATANE [Suspect]
     Indication: PSORIASIS

REACTIONS (1)
  - ESSENTIAL TREMOR [None]
